FAERS Safety Report 15947196 (Version 1)
Quarter: 2019Q1

REPORT INFORMATION
  Report Type: Spontaneous
  Country: US (occurrence: US)
  Receive Date: 20190211
  Receipt Date: 20190211
  Transmission Date: 20190417
  Serious: No
  Sender: FDA-Public Use
  Company Number: US-PFIZER INC-2019061055

PATIENT
  Sex: Female

DRUGS (2)
  1. EUCRISA [Suspect]
     Active Substance: CRISABOROLE
     Dosage: UNK, TWICE A DAY
  2. ELIDEL [Suspect]
     Active Substance: PIMECROLIMUS
     Dosage: UNK

REACTIONS (3)
  - Application site pruritus [Unknown]
  - Application site rash [Unknown]
  - Application site pain [Unknown]
